FAERS Safety Report 13777377 (Version 6)
Quarter: 2017Q4

REPORT INFORMATION
  Report Type: Report from Study
  Country: DE (occurrence: DE)
  Receive Date: 20170721
  Receipt Date: 20171006
  Transmission Date: 20180320
  Serious: Yes (Death, Hospitalization, Other)
  Sender: FDA-Public Use
  Company Number: DE-BRISTOL-MYERS SQUIBB COMPANY-BMS-2017-063420

PATIENT
  Age: 81 Year
  Sex: Female

DRUGS (2)
  1. APIXABAN [Suspect]
     Active Substance: APIXABAN
     Indication: CEREBROVASCULAR ACCIDENT PROPHYLAXIS
     Dosage: 2.5 MG, BID
     Route: 065
     Dates: end: 20170712
  2. LOW-MOLECULAR-WEIGHT HEPARIN CALCIUM [Concomitant]
     Indication: PRODUCT USED FOR UNKNOWN INDICATION
     Dosage: 5000 IU, QD
     Route: 065
     Dates: start: 20170714, end: 20170720

REACTIONS (4)
  - Post procedural sepsis [Fatal]
  - Small intestinal obstruction [Unknown]
  - Multiple organ dysfunction syndrome [Fatal]
  - Large intestine perforation [Recovered/Resolved]

NARRATIVE: CASE EVENT DATE: 201707
